FAERS Safety Report 13471383 (Version 1)
Quarter: 2017Q2

REPORT INFORMATION
  Report Type: Report from Study
  Country: CA (occurrence: CA)
  Receive Date: 20170424
  Receipt Date: 20170424
  Transmission Date: 20170830
  Serious: Yes (Death)
  Sender: FDA-Public Use
  Company Number: PHHY2016CA127669

PATIENT
  Sex: Male

DRUGS (1)
  1. VOTRIENT [Suspect]
     Active Substance: PAZOPANIB HYDROCHLORIDE
     Indication: METASTATIC RENAL CELL CARCINOMA
     Dosage: 800 MG, UNK
     Route: 048
     Dates: start: 20160912

REACTIONS (9)
  - Sleep disorder [Unknown]
  - Vomiting [Unknown]
  - Death [Fatal]
  - Malaise [Unknown]
  - Back pain [Unknown]
  - Nausea [Unknown]
  - Gait disturbance [Unknown]
  - Decreased appetite [Unknown]
  - Blood pressure abnormal [Unknown]
